FAERS Safety Report 9267463 (Version 2)
Quarter: 2013Q3

REPORT INFORMATION
  Report Type: Spontaneous
  Country: TR (occurrence: TR)
  Receive Date: 20130502
  Receipt Date: 20130704
  Transmission Date: 20140515
  Serious: Yes (Life-Threatening, Hospitalization)
  Sender: FDA-Public Use
  Company Number: TR-ABBOTT-13X-161-1084041-00

PATIENT
  Age: 24 Year
  Sex: Female

DRUGS (2)
  1. VALPROIC ACID [Suspect]
     Indication: EPILEPSY
     Dosage: 1 GRAM; DAILY
  2. VALPROIC ACID [Suspect]
     Dosage: 20000 MILLIGRAM (S) ; ONCE
     Route: 048

REACTIONS (13)
  - Brain oedema [Recovered/Resolved]
  - Intentional overdose [Unknown]
  - Coma [Recovered/Resolved]
  - Pancreatitis acute [Recovered/Resolved]
  - Thrombocytopenia [Recovered/Resolved]
  - Amylase increased [Recovered/Resolved]
  - Lipase increased [Unknown]
  - White blood cell count increased [Recovered/Resolved]
  - Blood sodium increased [Recovered/Resolved]
  - Blood creatinine increased [Recovered/Resolved]
  - Blood urea increased [Unknown]
  - Aspartate aminotransferase increased [Recovered/Resolved]
  - Alanine aminotransferase increased [Recovered/Resolved]
